FAERS Safety Report 8234132-7 (Version None)
Quarter: 2012Q1

REPORT INFORMATION
  Report Type: 
  Country: None (occurrence: None)
  Receive Date: 20120326
  Receipt Date: 20120319
  Transmission Date: 20120608
  Serious: Yes (Hospitalization)
  Sender: FDA-Public Use
  Company Number: GB-AMGEN-GBRCT2012017412

PATIENT
  Age: 72 Year
  Sex: Male

DRUGS (4)
  1. EPIRUBICIN [Concomitant]
     Dosage: UNK
     Dates: start: 20100728, end: 20101130
  2. PANITUMUMAB [Suspect]
     Indication: GASTROOESOPHAGEAL CANCER
     Dosage: UNK
     Dates: start: 20100728, end: 20101130
  3. OXALIPLATIN [Concomitant]
     Dosage: UNK
     Dates: start: 20100728, end: 20101130
  4. CAPECITABINE [Concomitant]
     Dosage: UNK
     Dates: start: 20100728, end: 20101130

REACTIONS (2)
  - BLOOD MAGNESIUM DECREASED [None]
  - INFECTION [None]
